FAERS Safety Report 13622832 (Version 1)
Quarter: 2017Q2

REPORT INFORMATION
  Report Type: Report from Study
  Country: None (occurrence: US)
  Receive Date: 20170607
  Receipt Date: 20170607
  Transmission Date: 20170830
  Serious: Yes (Hospitalization)
  Sender: FDA-Public Use
  Company Number: US-ABBVIE-17K-163-1995383-00

PATIENT
  Age: 63 Year
  Sex: Male

DRUGS (1)
  1. HUMIRA [Suspect]
     Active Substance: ADALIMUMAB
     Indication: PSORIASIS
     Route: 058
     Dates: start: 201703

REACTIONS (13)
  - Post-traumatic pain [Recovering/Resolving]
  - Vomiting [Recovering/Resolving]
  - Road traffic accident [Recovered/Resolved]
  - Visual impairment [Not Recovered/Not Resolved]
  - Flatulence [Recovering/Resolving]
  - Loss of consciousness [Recovered/Resolved]
  - Nausea [Recovering/Resolving]
  - Injection site pain [Recovered/Resolved]
  - Joint swelling [Recovering/Resolving]
  - Abdominal pain [Recovering/Resolving]
  - Device issue [Recovered/Resolved]
  - Decreased appetite [Recovering/Resolving]
  - Constipation [Recovering/Resolving]

NARRATIVE: CASE EVENT DATE: 2017
